FAERS Safety Report 8328623-8 (Version None)
Quarter: 2012Q2

REPORT INFORMATION
  Report Type: 
  Country: None (occurrence: None)
  Receive Date: 20120502
  Receipt Date: 20100805
  Transmission Date: 20120825
  Serious: No
  Sender: FDA-Public Use
  Company Number: US-TEVA-2010004135

PATIENT
  Sex: Female
  Weight: 70.37 kg

DRUGS (3)
  1. NUVIGIL [Suspect]
     Indication: BIPOLAR DISORDER
  2. NUVIGIL [Suspect]
     Indication: CIRCADIAN RHYTHM SLEEP DISORDER
     Dosage: 150 MILLIGRAM;
     Route: 048
     Dates: start: 20100701
  3. EXFORGE [Concomitant]

REACTIONS (1)
  - SOMNOLENCE [None]
